FAERS Safety Report 17128957 (Version 1)
Quarter: 2019Q4

REPORT INFORMATION
  Report Type: Spontaneous
  Country: US (occurrence: US)
  Receive Date: 20191208
  Receipt Date: 20191208
  Transmission Date: 20200122
  Serious: Yes (Disabling)
  Sender: FDA-Public Use
  Company Number: None

PATIENT
  Age: 81 Year
  Sex: Male
  Weight: 87.3 kg

DRUGS (2)
  1. LEVAQUIN [Suspect]
     Active Substance: LEVOFLOXACIN
     Indication: URINARY TRACT INFECTION
     Dates: start: 20191202, end: 20191206
  2. DIOVAN [Concomitant]
     Active Substance: VALSARTAN

REACTIONS (3)
  - Pain in extremity [None]
  - Arthralgia [None]
  - Joint stiffness [None]

NARRATIVE: CASE EVENT DATE: 20191202
